FAERS Safety Report 6381897-5 (Version None)
Quarter: 2009Q3

REPORT INFORMATION
  Report Type: 
  Country: None (occurrence: None)
  Receive Date: 20090930
  Receipt Date: 20090914
  Transmission Date: 20100115
  Serious: Yes (Other)
  Sender: FDA-Public Use
  Company Number: CA-AVENTIS-200920792GDDC

PATIENT
  Age: 53 Year
  Sex: Female

DRUGS (5)
  1. LANTUS [Suspect]
     Route: 058
     Dates: start: 20090910, end: 20090912
  2. HUMALOG [Concomitant]
     Route: 058
  3. ALTACE [Concomitant]
     Route: 048
  4. SYNTHROID [Concomitant]
     Route: 048
  5. LIPITOR [Concomitant]
     Route: 048

REACTIONS (1)
  - DERMATITIS BULLOUS [None]
